FAERS Safety Report 9949466 (Version 1)
Quarter: 2014Q1

REPORT INFORMATION
  Report Type: Spontaneous
  Country: US (occurrence: US)
  Receive Date: 20140304
  Receipt Date: 20140304
  Transmission Date: 20141002
  Serious: No
  Sender: FDA-Public Use
  Company Number: US-PFIZER INC-2014057748

PATIENT
  Sex: 0

DRUGS (3)
  1. ADVIL ALLERGY AND CONGESTION RELIEF [Suspect]
     Indication: NASAL CONGESTION
     Dosage: UNK
  2. ADVIL ALLERGY AND CONGESTION RELIEF [Suspect]
     Indication: ECZEMA
  3. ADVIL ALLERGY AND CONGESTION RELIEF [Suspect]
     Indication: HYPERSENSITIVITY

REACTIONS (1)
  - Off label use [Unknown]
